FAERS Safety Report 16905819 (Version 1)
Quarter: 2019Q4

REPORT INFORMATION
  Report Type: Spontaneous
  Country: CA (occurrence: CA)
  Receive Date: 20191010
  Receipt Date: 20191010
  Transmission Date: 20200122
  Serious: Yes (Disabling)
  Sender: FDA-Public Use
  Company Number: CA-TEVA-2019-CA-1119365

PATIENT
  Age: 72 Year
  Sex: Male

DRUGS (2)
  1. BACLOFEN. [Suspect]
     Active Substance: BACLOFEN
     Indication: TEMPOROMANDIBULAR JOINT SYNDROME
     Dosage: 30 MILLIGRAM DAILY;
     Route: 048
  2. BACLOFEN. [Suspect]
     Active Substance: BACLOFEN
     Indication: FACIAL PAIN

REACTIONS (2)
  - Condition aggravated [Recovered/Resolved]
  - Muscle contractions involuntary [Recovered/Resolved]
